FAERS Safety Report 10583632 (Version 2)
Quarter: 2014Q4

REPORT INFORMATION
  Report Type: Report from Study
  Country: CA (occurrence: CA)
  Receive Date: 20141114
  Receipt Date: 20141114
  Transmission Date: 20150529
  Serious: Yes (Death, Other)
  Sender: FDA-Public Use
  Company Number: PHHY2012CA049366

PATIENT
  Age: 72 Year
  Sex: Female

DRUGS (1)
  1. SANDOSTATIN LAR DEPOT [Suspect]
     Active Substance: OCTREOTIDE ACETATE
     Indication: NEUROENDOCRINE TUMOUR
     Dosage: 30 MG, ONCE A MONTH
     Route: 030
     Dates: start: 20120508, end: 20140714

REACTIONS (4)
  - Blood pressure systolic increased [Unknown]
  - Diarrhoea [Recovered/Resolved]
  - Death [Fatal]
  - Body temperature decreased [Unknown]

NARRATIVE: CASE EVENT DATE: 20140416
